FAERS Safety Report 19840259 (Version 2)
Quarter: 2021Q3

REPORT INFORMATION
  Report Type: Spontaneous
  Country: JP (occurrence: JP)
  Receive Date: 20210915
  Receipt Date: 20210927
  Transmission Date: 20211014
  Serious: Yes (Other)
  Sender: FDA-Public Use
  Company Number: JP-TAKEDA-2021TUS057244

PATIENT

DRUGS (8)
  1. FEBURIC [Suspect]
     Active Substance: FEBUXOSTAT
     Indication: HYPERURICAEMIA
     Dosage: 20 MILLIGRAM, QD
     Route: 048
     Dates: end: 20210718
  2. MYONAL [Concomitant]
     Indication: CERVICOBRACHIAL SYNDROME
     Dosage: 50 MILLIGRAM, QD
     Route: 048
     Dates: end: 20210718
  3. TERAMURO [Concomitant]
     Indication: HYPERTENSION
     Dosage: 1 DOSAGE FORM, QD
     Route: 048
  4. RUPAFIN [Concomitant]
     Active Substance: RUPATADINE FUMARATE
     Indication: RHINITIS ALLERGIC
     Dosage: 10 MILLIGRAM, QD
     Route: 048
     Dates: end: 20210718
  5. SEIHAITO [Concomitant]
     Active Substance: HERBALS
     Dosage: 3 GRAM, BID
     Route: 048
  6. BEZATOL [Concomitant]
     Active Substance: BEZAFIBRATE
     Indication: HYPERLIPIDAEMIA
     Dosage: 200 MILLIGRAM, BID
     Route: 048
     Dates: end: 20210718
  7. MONTELUKAST [Concomitant]
     Active Substance: MONTELUKAST SODIUM
     Indication: RHINITIS ALLERGIC
     Dosage: 10 MILLIGRAM, QD
     Route: 048
     Dates: end: 20210718
  8. SEIHAITO [Concomitant]
     Active Substance: HERBALS
     Indication: PRODUCTIVE COUGH
     Dosage: 3 GRAM, BID
     Route: 048
     Dates: end: 20210718

REACTIONS (1)
  - Duodenal ulcer [Recovered/Resolved]

NARRATIVE: CASE EVENT DATE: 20210705
